FAERS Safety Report 12966062 (Version 1)
Quarter: 2016Q4

REPORT INFORMATION
  Report Type: Spontaneous
  Country: AU (occurrence: AU)
  Receive Date: 20161122
  Receipt Date: 20161122
  Transmission Date: 20170207
  Serious: Yes (Hospitalization)
  Sender: FDA-Public Use
  Company Number: AU-MYLANLABS-2016M1050993

PATIENT

DRUGS (5)
  1. NEXIUM 1-2-3 [Concomitant]
     Active Substance: AMOXICILLIN\CLARITHROMYCIN\ESOMEPRAZOLE
     Indication: PRODUCT USED FOR UNKNOWN INDICATION
     Dosage: UNK
     Dates: start: 20101129
  2. CARVEA [Suspect]
     Active Substance: IRBESARTAN
  3. CANAKINUMAB [Concomitant]
     Active Substance: CANAKINUMAB
     Indication: PROPHYLAXIS
     Dosage: UNK
     Route: 058
  4. AMOXICILLIN/CLAVULANIC ACID [Suspect]
     Active Substance: AMOXICILLIN\CLAVULANIC ACID
     Indication: CHOLECYSTITIS ACUTE
     Dosage: 500 MG, BID
     Route: 048
     Dates: start: 20160325, end: 20160330
  5. PIPERACILLIN/TAZOBACTAM [Suspect]
     Active Substance: PIPERACILLIN SODIUM\TAZOBACTAM SODIUM
     Indication: CHOLECYSTITIS ACUTE
     Dosage: 4.5 G, TID
     Route: 042
     Dates: start: 20160319, end: 20160325

REACTIONS (7)
  - Diarrhoea infectious [Recovered/Resolved]
  - Biliary tract disorder [None]
  - Hepatic steatosis [None]
  - Gallbladder disorder [Recovered/Resolved]
  - Cholelithiasis [None]
  - Cholecystitis acute [None]
  - Troponin I increased [None]

NARRATIVE: CASE EVENT DATE: 20160331
